FAERS Safety Report 19401986 (Version 4)
Quarter: 2021Q3

REPORT INFORMATION
  Report Type: Report from Study
  Country: CN (occurrence: CN)
  Receive Date: 20210610
  Receipt Date: 20210809
  Transmission Date: 20211014
  Serious: Yes (Death)
  Sender: FDA-Public Use
  Company Number: CN-PFIZER INC-2021652075

PATIENT
  Age: 62 Year
  Sex: Male
  Weight: 55.5 kg

DRUGS (11)
  1. CIMETIDINE [Concomitant]
     Active Substance: CIMETIDINE
     Indication: ANTIALLERGIC THERAPY
     Dosage: 0.3 G (SINGLE?DOSE)
     Route: 041
     Dates: start: 20210525, end: 20210525
  2. GRANISETRON HYDROCHLORIDE. [Concomitant]
     Active Substance: GRANISETRON HYDROCHLORIDE
     Indication: PROPHYLAXIS
     Dosage: 6 MG (SINGLE?DOSE)
     Route: 041
     Dates: start: 20210525, end: 20210525
  3. XIN RUI BAI [Concomitant]
     Indication: PROPHYLAXIS
     Dosage: 6 MG (SINGLE?DOSE)
     Route: 058
     Dates: start: 20210525, end: 20210525
  4. ANZATAX [PACLITAXEL] [Suspect]
     Active Substance: PACLITAXEL
     Indication: NON-SMALL CELL LUNG CANCER
     Dosage: 277 MG (ONCE EVERY THREE WEEKS)
     Route: 041
     Dates: start: 20210525, end: 20210525
  5. YUN NAN BAI YAO [ACONITUM KUSNEZOFFII ROOT;HERBAL NOS] [Concomitant]
     Indication: HAEMOSTASIS
     Dosage: 0.5 G, AS NEEDED
     Route: 048
     Dates: start: 20210515, end: 20210528
  6. PANTOPRAZOLE SODIUM. [Concomitant]
     Active Substance: PANTOPRAZOLE SODIUM
     Indication: PROPHYLAXIS
     Dosage: 40 MG (SINGLE?DOSE)
     Route: 041
     Dates: start: 20210525, end: 20210525
  7. BLINDED THERAPY [Suspect]
     Active Substance: INVESTIGATIONAL PRODUCT
     Indication: NON-SMALL CELL LUNG CANCER
     Dosage: UNK, EVERY 3 WEEKS
     Route: 041
     Dates: start: 20210524, end: 20210524
  8. PROMETHAZINE HCL [Concomitant]
     Active Substance: PROMETHAZINE HYDROCHLORIDE
     Indication: ANTIALLERGIC THERAPY
     Dosage: 25 MG (SINGLE?DOSE)
     Route: 030
     Dates: start: 20210525, end: 20210525
  9. BO BEI [Suspect]
     Active Substance: CARBOPLATIN
     Indication: NON-SMALL CELL LUNG CANCER
     Dosage: 400 MG (ONCE EVERY THREE WEEKS)
     Route: 041
     Dates: start: 20210525, end: 20210525
  10. DEXAMETHASONE. [Concomitant]
     Active Substance: DEXAMETHASONE
     Indication: ANTIALLERGIC THERAPY
     Dosage: 10 MG (SINGLE?DOSE)
     Route: 040
     Dates: start: 20210525, end: 20210525
  11. ACARBOSE. [Concomitant]
     Active Substance: ACARBOSE
     Indication: BLOOD GLUCOSE ABNORMAL
     Dosage: 50 MG, 3X/DAY
     Route: 048
     Dates: start: 20210515, end: 20210528

REACTIONS (1)
  - Death [Fatal]

NARRATIVE: CASE EVENT DATE: 20210528
